FAERS Safety Report 6338133-5 (Version None)
Quarter: 2009Q3

REPORT INFORMATION
  Report Type: 
  Country: None (occurrence: None)
  Receive Date: 20090902
  Receipt Date: 20090717
  Transmission Date: 20100115
  Serious: Yes (Congenital Anomaly, Other)
  Sender: FDA-Public Use
  Company Number: ES-PFIZER INC-2009230434

PATIENT

DRUGS (2)
  1. NELFINAVIR MESILATE [Suspect]
     Indication: HIV INFECTION
  2. SAQUINAVIR [Suspect]
     Indication: HIV INFECTION

REACTIONS (5)
  - CONGENITAL ANOMALY [None]
  - DRUG WITHDRAWAL SYNDROME NEONATAL [None]
  - LIVE BIRTH [None]
  - PREMATURE BABY [None]
  - SMALL FOR DATES BABY [None]
